FAERS Safety Report 17061840 (Version 11)
Quarter: 2022Q1

REPORT INFORMATION
  Report Type: Report from Study
  Country: US (occurrence: US)
  Receive Date: 20191121
  Receipt Date: 20220315
  Transmission Date: 20220423
  Serious: Yes (Hospitalization, Other)
  Sender: FDA-Public Use
  Company Number: US-SHIRE-US201939676

PATIENT
  Sex: Female
  Weight: 61 kg

DRUGS (17)
  1. TEDUGLUTIDE [Suspect]
     Active Substance: TEDUGLUTIDE
     Indication: Short-bowel syndrome
     Dosage: 0.38 MILLILITER, QD
     Route: 058
  2. TEDUGLUTIDE [Suspect]
     Active Substance: TEDUGLUTIDE
     Indication: Short-bowel syndrome
     Dosage: 0.38 MILLILITER, QD
     Route: 058
  3. TEDUGLUTIDE [Suspect]
     Active Substance: TEDUGLUTIDE
     Indication: Short-bowel syndrome
     Dosage: 0.38 MILLILITER, QD
     Route: 058
  4. TEDUGLUTIDE [Suspect]
     Active Substance: TEDUGLUTIDE
     Indication: Short-bowel syndrome
     Dosage: 0.38 MILLILITER, QD
     Route: 058
  5. TEDUGLUTIDE [Suspect]
     Active Substance: TEDUGLUTIDE
     Dosage: 0.38 MILLILITER, QD
     Route: 058
  6. TEDUGLUTIDE [Suspect]
     Active Substance: TEDUGLUTIDE
     Dosage: 0.38 MILLILITER, QD
     Route: 058
  7. TEDUGLUTIDE [Suspect]
     Active Substance: TEDUGLUTIDE
     Dosage: 0.38 MILLILITER, QD
     Route: 058
  8. TEDUGLUTIDE [Suspect]
     Active Substance: TEDUGLUTIDE
     Dosage: 0.38 MILLILITER, QD
     Route: 058
  9. TROKENDI XR [Concomitant]
     Active Substance: TOPIRAMATE
     Dosage: 200 MILLIGRAM, QD
     Route: 065
  10. ALPRAZOLAM [Concomitant]
     Active Substance: ALPRAZOLAM
     Dosage: 2 MILLIGRAM
     Route: 065
  11. CYMBALTA [Concomitant]
     Active Substance: DULOXETINE HYDROCHLORIDE
     Dosage: 60 MILLIGRAM
     Route: 065
  12. TOPIRAMATE [Concomitant]
     Active Substance: TOPIRAMATE
     Dosage: 25 MILLIGRAM
     Route: 065
  13. TPN [Concomitant]
     Active Substance: AMINO ACIDS\DEXTROSE\ELECTROLYTES NOS\SOYBEAN OIL
     Dosage: UNK UNK, QD
  14. SODIUM CHLORIDE [Concomitant]
     Active Substance: SODIUM CHLORIDE
     Dosage: UNK UNK, QD
  15. ELECTROLYTES NOS [Concomitant]
     Active Substance: ELECTROLYTES NOS
  16. FETZIMA [Concomitant]
     Active Substance: LEVOMILNACIPRAN HYDROCHLORIDE
     Dosage: 120 MILLIGRAM, QD
  17. VIMPAT [Concomitant]
     Active Substance: LACOSAMIDE
     Dosage: 100 MILLIGRAM

REACTIONS (18)
  - Coma [Unknown]
  - Seizure [Unknown]
  - Epilepsy [Unknown]
  - Skin laceration [Unknown]
  - Blood glucose decreased [Not Recovered/Not Resolved]
  - Wound [Not Recovered/Not Resolved]
  - Insomnia [Unknown]
  - Upper limb fracture [Unknown]
  - Unevaluable event [Unknown]
  - Weight decreased [Unknown]
  - Depressed mood [Unknown]
  - Fall [Unknown]
  - Nerve compression [Not Recovered/Not Resolved]
  - Wrist fracture [Not Recovered/Not Resolved]
  - Limb injury [Unknown]
  - Nausea [Unknown]
  - Vomiting [Unknown]
  - Decreased appetite [Unknown]
